FAERS Safety Report 5409569-1 (Version None)
Quarter: 2007Q3

REPORT INFORMATION
  Report Type: 
  Country: None (occurrence: None)
  Receive Date: 20070807
  Receipt Date: 20070723
  Transmission Date: 20080115
  Serious: Yes (Hospitalization)
  Sender: FDA-Public Use
  Company Number: SPI200700208

PATIENT
  Age: 71 Year
  Sex: Female
  Weight: 81.2 kg

DRUGS (6)
  1. AMITIZA [Suspect]
     Indication: CONSTIPATION
     Dosage: 24 MCG, BID; 24 MCG, BID, ORAL
     Route: 048
     Dates: start: 20070321, end: 20070321
  2. AMITIZA [Suspect]
     Indication: CONSTIPATION
     Dosage: 24 MCG, BID; 24 MCG, BID, ORAL
     Route: 048
     Dates: start: 20070424, end: 20070424
  3. TOPROL-XL [Suspect]
     Indication: HYPERTENSION
     Dosage: 25 MG, QD, ORAL
     Route: 048
     Dates: end: 20070301
  4. BENICAR [Suspect]
     Indication: HYPERTENSION
     Dosage: 40 MG, QD, ORAL
     Route: 048
     Dates: end: 20070301
  5. EVISTA [Concomitant]
  6. ZOCOR [Concomitant]

REACTIONS (5)
  - DIARRHOEA [None]
  - DIZZINESS [None]
  - HYPERHIDROSIS [None]
  - HYPOTENSION [None]
  - NAUSEA [None]
